FAERS Safety Report 8300255-7 (Version None)
Quarter: 2012Q2

REPORT INFORMATION
  Report Type: 
  Country: None (occurrence: None)
  Receive Date: 20120420
  Receipt Date: 20120411
  Transmission Date: 20120825
  Serious: Yes (Other)
  Sender: FDA-Public Use
  Company Number: CA-JNJFOC-20120406347

PATIENT
  Sex: Female

DRUGS (1)
  1. REMICADE [Suspect]
     Indication: PSORIATIC ARTHROPATHY
     Route: 042

REACTIONS (5)
  - HYPOAESTHESIA [None]
  - CHOLELITHIASIS [None]
  - ARTHRITIS [None]
  - HOT FLUSH [None]
  - DYSPEPSIA [None]
